FAERS Safety Report 25654075 (Version 1)
Quarter: 2025Q3

REPORT INFORMATION
  Report Type: Spontaneous
  Country: US (occurrence: US)
  Receive Date: 20250807
  Receipt Date: 20250807
  Transmission Date: 20251020
  Serious: Yes (Hospitalization)
  Sender: MYLAN
  Company Number: US-MYLANLABS-2025M1066634

PATIENT
  Age: 66 Year
  Sex: Female

DRUGS (5)
  1. VALPROIC ACID [Interacting]
     Active Substance: VALPROIC ACID
     Indication: Bipolar disorder
     Dosage: 250 MILLIGRAM, BID
  2. VALPROIC ACID [Interacting]
     Active Substance: VALPROIC ACID
     Dosage: 500 MILLIGRAM, BID
  3. APIXABAN [Interacting]
     Active Substance: APIXABAN
     Indication: Pulmonary embolism
     Dosage: 10 MILLIGRAM, BID
  4. APIXABAN [Interacting]
     Active Substance: APIXABAN
     Dosage: 5 MILLIGRAM, BID
  5. LITHIUM [Concomitant]
     Active Substance: LITHIUM
     Indication: Bipolar disorder
     Dosage: 300 MILLIGRAM, BID

REACTIONS (4)
  - Deep vein thrombosis [Unknown]
  - Anticoagulation drug level decreased [Unknown]
  - Drug interaction [Unknown]
  - Off label use [Unknown]
